FAERS Safety Report 4592230-3 (Version None)
Quarter: 2005Q1

REPORT INFORMATION
  Report Type: 
  Country: None (occurrence: None)
  Receive Date: 20050228
  Receipt Date: 20041005
  Transmission Date: 20050727
  Serious: Yes (Other)
  Sender: FDA-Public Use
  Company Number: US-BRISTOL-MYERS SQUIBB COMPANY-12722732

PATIENT
  Age: 36 Year
  Sex: Male

DRUGS (6)
  1. ABILIFY [Suspect]
     Indication: SCHIZOAFFECTIVE DISORDER
     Dosage: TAPERED TO 7.5 MG/DAY, THEN DISCONTINUED
     Route: 048
     Dates: start: 20040416, end: 20041025
  2. DEPAKOTE [Concomitant]
     Route: 048
     Dates: end: 20040823
  3. LITHIUM [Concomitant]
     Dosage: DECREASED TO 300 MG 1 TABLET 2 TIMES/DAY ON 15-SEP-2004, DISCONTINUED ON 04-OCT-04.
     Dates: start: 20040823, end: 20041004
  4. QVAR 40 [Concomitant]
  5. ALBUTEROL [Concomitant]
  6. GEMFIBROZIL [Concomitant]
     Dates: start: 20040921

REACTIONS (4)
  - ALANINE AMINOTRANSFERASE INCREASED [None]
  - BLOOD CHOLESTEROL INCREASED [None]
  - BLOOD TRIGLYCERIDES INCREASED [None]
  - NOCTURIA [None]
